FAERS Safety Report 4844742-2 (Version None)
Quarter: 2005Q4

REPORT INFORMATION
  Report Type: 
  Country: None (occurrence: None)
  Receive Date: 20051129
  Receipt Date: 20051117
  Transmission Date: 20060501
  Serious: Yes (Hospitalization, Other)
  Sender: FDA-Public Use
  Company Number: HQWYE273707SEP05

PATIENT
  Age: 43 Year
  Sex: Male

DRUGS (3)
  1. GEMTUZUMAB OZOGAMICIN (GEMTUZUMAB OZOGAMICIN, INJECTION) [Suspect]
     Dosage: 9 MG 1X PER 1 DAY
     Dates: start: 20050808, end: 20050808
  2. CYTARABINE [Suspect]
     Dosage: ACTUAL DOSE 180 MG, WITH CUMULATIVE DOSE OF 1800 MG GIVEN
     Dates: start: 20050802, end: 20050811
  3. IDARUBICIN HCL [Suspect]
     Dosage: ACTUAL DOSE 21.6 MG, WITH CUMULATIVE DOSE OF 64.8 MG GIVEN
     Dates: start: 20050802, end: 20050806

REACTIONS (1)
  - INTERSTITIAL LUNG DISEASE [None]
